FAERS Safety Report 11228983 (Version 1)
Quarter: 2015Q2

REPORT INFORMATION
  Report Type: Spontaneous
  Country: US (occurrence: US)
  Receive Date: 20150630
  Receipt Date: 20150630
  Transmission Date: 20150821
  Serious: Yes (Hospitalization, Other)
  Sender: FDA-Public Use
  Company Number: US-009507513-1105USA01334

PATIENT
  Sex: Female
  Weight: 67.59 kg

DRUGS (7)
  1. FOSAMAX [Suspect]
     Active Substance: ALENDRONATE SODIUM
     Indication: OSTEOPOROSIS
     Dosage: 10 MG, QD
     Route: 048
     Dates: start: 199601, end: 20010202
  2. CALCIUM (UNSPECIFIED) [Concomitant]
     Active Substance: CALCIUM
     Dosage: 1500 MG, QD
     Dates: start: 1996
  3. FOSAMAX [Suspect]
     Active Substance: ALENDRONATE SODIUM
     Indication: OSTEOPENIA
     Dosage: 70 MG, UNK
     Route: 048
     Dates: start: 20010525, end: 200207
  4. BONIVA [Suspect]
     Active Substance: IBANDRONATE SODIUM
     Indication: OSTEOPOROSIS
     Dosage: 150 MG, QM
     Route: 048
     Dates: start: 200610, end: 200904
  5. ACTONEL [Suspect]
     Active Substance: RISEDRONATE SODIUM
     Indication: OSTEOPENIA
  6. BONIVA [Suspect]
     Active Substance: IBANDRONATE SODIUM
     Indication: OSTEOPENIA
  7. ACTONEL [Suspect]
     Active Substance: RISEDRONATE SODIUM
     Indication: OSTEOPOROSIS
     Route: 048
     Dates: start: 2002

REACTIONS (33)
  - Hypokalaemia [Unknown]
  - Escherichia urinary tract infection [Unknown]
  - Depression [Unknown]
  - Pulmonary hypertension [Unknown]
  - Femur fracture [Recovered/Resolved]
  - Hypertrophic cardiomyopathy [Unknown]
  - Blood cholesterol increased [Unknown]
  - Postoperative adhesion [Unknown]
  - Open reduction of fracture [Unknown]
  - Clostridium difficile colitis [Unknown]
  - Anger [Unknown]
  - Renal cyst [Unknown]
  - Glucose tolerance impaired [Unknown]
  - Impaired healing [Unknown]
  - Haemoglobin decreased [Unknown]
  - Acute myocardial infarction [Unknown]
  - Candida infection [Unknown]
  - Femur fracture [Unknown]
  - Heart disease congenital [Unknown]
  - Staphylococcal infection [Unknown]
  - Bursitis [Unknown]
  - Jaw disorder [Not Recovered/Not Resolved]
  - Dizziness [Unknown]
  - Anaemia postoperative [Unknown]
  - Pulmonary mass [Unknown]
  - Nephrolithiasis [Unknown]
  - Tooth disorder [Unknown]
  - Hyperparathyroidism primary [Unknown]
  - Osteoarthritis [Unknown]
  - Hypertension [Unknown]
  - Vertigo [Unknown]
  - Spinal osteoarthritis [Unknown]
  - Abdominal discomfort [Unknown]

NARRATIVE: CASE EVENT DATE: 1997
